FAERS Safety Report 7080555-1 (Version None)
Quarter: 2010Q4

REPORT INFORMATION
  Report Type: 
  Country: None (occurrence: None)
  Receive Date: 20101025
  Receipt Date: 20101015
  Transmission Date: 20110411
  Serious: Yes (Life-Threatening, Other)
  Sender: FDA-Public Use
  Company Number: ENT 2010-0141

PATIENT
  Age: 62 Year
  Sex: Female

DRUGS (9)
  1. COMTAN [Suspect]
     Indication: DRUG EFFECT DECREASED
     Dosage: 100 MG DAILY, ORAL
     Route: 048
     Dates: start: 20090604
  2. BI-SIFROL (PRAMIPEXOLE) [Suspect]
     Indication: PARKINSON'S DISEASE
     Dosage: 1.5 MG DAILY, ORAL
     Route: 048
     Dates: start: 20090209
  3. CARBIDOPA AND LEVODOPA [Suspect]
     Indication: PARKINSON'S DISEASE
     Dosage: 300 MG DAILY, ORAL
     Route: 048
     Dates: start: 20090209
  4. ARTANE [Suspect]
     Indication: PARKINSON'S DISEASE
     Dosage: 2 MG DAILY
     Dates: start: 20090209
  5. ZOLOFT [Suspect]
     Dosage: 2 DF, DAILY (25 MG DAILY)
     Dates: start: 20100624
  6. MENESIT [Concomitant]
  7. TOPHARMIN [Concomitant]
  8. LIPITOR [Concomitant]
  9. THYRADIN S [Concomitant]

REACTIONS (7)
  - CONTUSION [None]
  - DRUG INTERACTION [None]
  - INAPPROPRIATE SCHEDULE OF DRUG ADMINISTRATION [None]
  - LOSS OF CONSCIOUSNESS [None]
  - PAIN [None]
  - ROAD TRAFFIC ACCIDENT [None]
  - SUDDEN ONSET OF SLEEP [None]
